FAERS Safety Report 23355214 (Version 3)
Quarter: 2024Q1

REPORT INFORMATION
  Report Type: Spontaneous
  Country: CA (occurrence: CA)
  Receive Date: 20240102
  Receipt Date: 20240131
  Transmission Date: 20240409
  Serious: Yes (Other)
  Sender: FDA-Public Use
  Company Number: CA-TEVA-VS-3138887

PATIENT
  Age: 28 Year
  Sex: Female

DRUGS (1)
  1. CLOBAZAM [Suspect]
     Active Substance: CLOBAZAM
     Indication: Generalised tonic-clonic seizure
     Route: 048
     Dates: start: 20231217

REACTIONS (4)
  - Seizure [Unknown]
  - Vomiting [Not Recovered/Not Resolved]
  - Malaise [Not Recovered/Not Resolved]
  - Product quality issue [Unknown]

NARRATIVE: CASE EVENT DATE: 20231217
